FAERS Safety Report 19707921 (Version 1)
Quarter: 2021Q3

REPORT INFORMATION
  Report Type: Spontaneous
  Country: US (occurrence: US)
  Receive Date: 20210816
  Receipt Date: 20210816
  Transmission Date: 20211014
  Serious: Yes (Hospitalization)
  Sender: FDA-Public Use
  Company Number: None

PATIENT
  Age: 53 Year
  Sex: Male

DRUGS (8)
  1. DEXAMETHASONE. [Concomitant]
     Active Substance: DEXAMETHASONE
  2. NEPHRON?VITE 0.8MG TAB [Concomitant]
  3. TAMSULOSIN [Concomitant]
     Active Substance: TAMSULOSIN
  4. ACYCLOVIR. [Concomitant]
     Active Substance: ACYCLOVIR
  5. POMALYST [Suspect]
     Active Substance: POMALIDOMIDE
     Indication: PLASMA CELL MYELOMA
     Dosage: 2MG QD X21/ 28D  ORAL
     Route: 048
     Dates: start: 20180706, end: 20210408
  6. ASA 81MG [Concomitant]
     Active Substance: ASPIRIN
  7. POMALYST [Concomitant]
     Active Substance: POMALIDOMIDE
  8. ELOTUZUMAB. [Concomitant]
     Active Substance: ELOTUZUMAB

REACTIONS (5)
  - CSF culture positive [None]
  - Meningitis cryptococcal [None]
  - End stage renal disease [None]
  - Plasma cell myeloma [None]
  - Therapy interrupted [None]

NARRATIVE: CASE EVENT DATE: 20210408
